FAERS Safety Report 8835832 (Version 1)
Quarter: 2012Q4

REPORT INFORMATION
  Report Type: 
  Country: AU (occurrence: AU)
  Receive Date: 20121011
  Receipt Date: 20121011
  Transmission Date: 20130627
  Serious: Yes (Hospitalization)
  Sender: FDA-Public Use
  Company Number: AU-GLAXOSMITHKLINE-B0836503A

PATIENT
  Age: 50 Year
  Sex: Female

DRUGS (9)
  1. AVAMYS [Suspect]
     Indication: PRODUCT USED FOR UNKNOWN INDICATION
     Route: 065
     Dates: start: 20120924
  2. VITAMIN D [Suspect]
     Indication: PRODUCT USED FOR UNKNOWN INDICATION
     Route: 065
     Dates: start: 20120924
  3. ZYRTEC [Suspect]
     Indication: PRODUCT USED FOR UNKNOWN INDICATION
     Route: 065
     Dates: start: 20120924
  4. TEMAZEPAM [Concomitant]
  5. ATORVASTATIN [Concomitant]
  6. ATENOLOL [Concomitant]
  7. REFRESH TEARS [Concomitant]
  8. OMEPRAZOLE [Concomitant]
  9. CELECOXIB [Concomitant]

REACTIONS (4)
  - Anaphylactic reaction [Unknown]
  - Pharyngeal oedema [Unknown]
  - Hypotension [Unknown]
  - Rash [Unknown]
